FAERS Safety Report 8352315-2 (Version None)
Quarter: 2012Q2

REPORT INFORMATION
  Report Type: 
  Country: None (occurrence: None)
  Receive Date: 20120511
  Receipt Date: 20120507
  Transmission Date: 20120825
  Serious: Yes (Hospitalization, Other)
  Sender: FDA-Public Use
  Company Number: US-JNJFOC-20120406441

PATIENT
  Age: 48 Year
  Sex: Male

DRUGS (8)
  1. CYCLOPHOSPHAMIDE [Suspect]
     Indication: PRIMARY EFFUSION LYMPHOMA
     Dosage: CYCLE 1
     Route: 065
  2. DOXORUBICIN HCL [Suspect]
     Indication: PRIMARY EFFUSION LYMPHOMA
     Dosage: CYCLE 1
     Route: 042
  3. ONCOVIN [Suspect]
     Indication: PRIMARY EFFUSION LYMPHOMA
     Dosage: CYCLE 1
     Route: 065
  4. ANTIRETROVIRALS [Suspect]
     Indication: HIV INFECTION
     Route: 065
  5. ETOPOSIDE [Suspect]
     Indication: PRIMARY EFFUSION LYMPHOMA
     Dosage: CYCLE 1
     Route: 065
  6. ANTIRETROVIRALS [Suspect]
     Indication: HUMAN HERPESVIRUS 8 INFECTION
     Route: 065
  7. PREDNISONE [Suspect]
     Indication: PRIMARY EFFUSION LYMPHOMA
     Dosage: CYCLE 1
     Route: 065
  8. DOXORUBICIN HCL [Suspect]
     Dosage: CYCLE 1
     Route: 065

REACTIONS (2)
  - LARGE INTESTINE PERFORATION [None]
  - SMALL INTESTINAL OBSTRUCTION [None]
